FAERS Safety Report 7949992-4 (Version None)
Quarter: 2011Q4

REPORT INFORMATION
  Report Type: 
  Country: None (occurrence: None)
  Receive Date: 20111130
  Receipt Date: 20111128
  Transmission Date: 20120403
  Serious: Yes (Death, Hospitalization)
  Sender: FDA-Public Use
  Company Number: US-BRISTOL-MYERS SQUIBB COMPANY-16241309

PATIENT
  Age: 82 Year
  Sex: Male
  Weight: 77 kg

DRUGS (3)
  1. TAXOL [Suspect]
     Indication: NON-SMALL CELL LUNG CANCER
     Dosage: LAST ADMIN:31OCT11
     Dates: start: 20110919, end: 20111031
  2. ERBITUX [Suspect]
     Indication: NON-SMALL CELL LUNG CANCER
     Dosage: LAST ADMIN:31OCT11. CONCURRENT PHASE: 7 WEEKS
     Dates: start: 20110919, end: 20111031
  3. CARBOPLATIN [Suspect]
     Indication: NON-SMALL CELL LUNG CANCER
     Dosage: LAST ADMIN:31OCT11.
     Dates: start: 20110919, end: 20111031

REACTIONS (5)
  - PNEUMONIA [None]
  - PYREXIA [None]
  - PNEUMONITIS [None]
  - DYSPNOEA [None]
  - CHILLS [None]
